FAERS Safety Report 8023388-1 (Version None)
Quarter: 2012Q1

REPORT INFORMATION
  Report Type: 
  Country: None (occurrence: None)
  Receive Date: 20120104
  Receipt Date: 20111229
  Transmission Date: 20120608
  Serious: No
  Sender: FDA-Public Use
  Company Number: US-PFIZER INC-2010047550

PATIENT
  Sex: Male
  Weight: 81.633 kg

DRUGS (14)
  1. COZAAR [Concomitant]
     Indication: HYPERTENSION
     Dosage: 50 MG, 2X/DAY
     Route: 048
  2. FISH OIL [Concomitant]
     Indication: THROMBOSIS PROPHYLAXIS
     Dosage: 6000 MG, 1X/DAY
  3. LIPITOR [Suspect]
     Dosage: UNK
     Route: 048
  4. ZETIA [Suspect]
     Indication: BLOOD CHOLESTEROL INCREASED
     Dosage: 10 MG, ALTERNATE DAY
     Route: 048
  5. ACETYLSALICYLIC ACID [Concomitant]
     Indication: THROMBOSIS PROPHYLAXIS
     Dosage: 81 MG, 1X/DAY
     Route: 048
  6. PERSANTINE [Concomitant]
     Indication: THROMBOSIS PROPHYLAXIS
     Dosage: 75 MG, 2X/DAY
     Route: 048
  7. VITAMINS WITH MINERALS [Concomitant]
     Indication: MACULAR DEGENERATION
     Dosage: UNK
  8. LIPITOR [Suspect]
     Indication: BLOOD CHOLESTEROL INCREASED
     Dosage: 10 MG, 1X/DAY
     Route: 048
  9. ZOVIA 1/35E-21 [Concomitant]
     Indication: BLOOD CHOLESTEROL INCREASED
     Dosage: UNK
  10. LIPITOR [Suspect]
     Dosage: 5 MG, ALTERNATE DAY
  11. LIPITOR [Suspect]
     Dosage: 5 MG, 1X/DAY
  12. MAGNESIUM OXIDE [Concomitant]
     Indication: MINERAL SUPPLEMENTATION
     Dosage: UNK
  13. LABETALOL [Concomitant]
     Indication: HYPERTENSION
     Dosage: 100 MG, 3X/DAY
  14. EZETIMIBE [Suspect]
     Indication: BLOOD CHOLESTEROL INCREASED
     Dosage: 10 MG, ALTERNATE DAY

REACTIONS (7)
  - LOW DENSITY LIPOPROTEIN INCREASED [None]
  - HYPERSENSITIVITY [None]
  - BLOOD CHOLESTEROL INCREASED [None]
  - MYALGIA [None]
  - BONE PAIN [None]
  - EXPIRED DRUG ADMINISTERED [None]
  - HIGH DENSITY LIPOPROTEIN DECREASED [None]
